FAERS Safety Report 24956021 (Version 1)
Quarter: 2025Q1

REPORT INFORMATION
  Report Type: Spontaneous
  Country: US (occurrence: US)
  Receive Date: 20250211
  Receipt Date: 20250211
  Transmission Date: 20250408
  Serious: No
  Sender: MYLAN
  Company Number: US-MYLANLABS-2025M1009474

PATIENT
  Sex: Male
  Weight: 73.48 kg

DRUGS (1)
  1. WIXELA INHUB [Suspect]
     Active Substance: FLUTICASONE PROPIONATE\SALMETEROL XINAFOATE
     Indication: Asthma
     Dosage: 250/50 MICROGRAM, BID (TWICE A DAY)
     Route: 055
     Dates: start: 202410

REACTIONS (2)
  - Drug ineffective [Unknown]
  - Device delivery system issue [Unknown]
